FAERS Safety Report 19747967 (Version 2)
Quarter: 2022Q1

REPORT INFORMATION
  Report Type: Other
  Country: NL (occurrence: None)
  Receive Date: 20210826
  Receipt Date: 20220125
  Transmission Date: 20220423
  Serious: Yes (Other)
  Sender: FDA-Public Use
  Company Number: NL-ROCHE-2893682

PATIENT

DRUGS (1)
  1. CAPECITABINE [Suspect]
     Active Substance: CAPECITABINE
     Indication: Squamous cell carcinoma
     Route: 065

REACTIONS (6)
  - Pain [Unknown]
  - Diarrhoea [Unknown]
  - Dehydration [Unknown]
  - Malaise [Unknown]
  - Arteriospasm coronary [Unknown]
  - Toxicity to various agents [Unknown]
